FAERS Safety Report 4397542-4 (Version None)
Quarter: 2004Q3

REPORT INFORMATION
  Report Type: 
  Country: None (occurrence: None)
  Receive Date: 20040713
  Receipt Date: 20040708
  Transmission Date: 20050211
  Serious: Yes (Other)
  Sender: FDA-Public Use
  Company Number: 001951

PATIENT
  Sex: Female

DRUGS (7)
  1. MEDROXYPROGESTERONE ACETATE [Suspect]
  2. PREMARIN [Suspect]
  3. ESTRATEST [Suspect]
  4. ESTRATAB [Suspect]
  5. PROVERA [Suspect]
  6. CYCRIN [Suspect]
  7. ESTROGENIC SUBSTANCE [Suspect]

REACTIONS (1)
  - BREAST CANCER FEMALE [None]
